FAERS Safety Report 10921673 (Version 1)
Quarter: 2015Q1

REPORT INFORMATION
  Report Type: Spontaneous
  Country: US (occurrence: None)
  Receive Date: 20150128
  Receipt Date: 20150128
  Transmission Date: 20150721
  Serious: No
  Sender: FDA-Public Use
  Company Number: 2014TUS010756

PATIENT
  Age: 51 Year
  Sex: Female
  Weight: 59.9 kg

DRUGS (2)
  1. VIVACTIL [Suspect]
     Active Substance: PROTRIPTYLINE HYDROCHLORIDE
     Dates: start: 20140729
  2. BRINTELLIX [Suspect]
     Active Substance: VORTIOXETINE HYDROBROMIDE
     Indication: MAJOR DEPRESSION
     Route: 048
     Dates: start: 20140729

REACTIONS (3)
  - Muscle rigidity [None]
  - Akathisia [None]
  - Extrapyramidal disorder [None]
